FAERS Safety Report 13368730 (Version 1)
Quarter: 2017Q1

REPORT INFORMATION
  Report Type: Spontaneous
  Country: US (occurrence: US)
  Receive Date: 20170324
  Receipt Date: 20170324
  Transmission Date: 20170429
  Serious: No
  Sender: FDA-Public Use
  Company Number: US-SUN PHARMACEUTICAL INDUSTRIES LTD-2016SUN00471

PATIENT
  Sex: Female

DRUGS (1)
  1. TECHNETIUM TC-99M MEBROFENIN KIT [Suspect]
     Active Substance: TECHNETIUM TC-99M MEBROFENIN
     Indication: HEPATOBILIARY SCAN
     Dosage: 4 MCI, OD
     Route: 042
     Dates: start: 20160510, end: 20160510

REACTIONS (3)
  - Urticaria [Unknown]
  - Swelling face [Unknown]
  - Eye swelling [Unknown]
